FAERS Safety Report 9153259 (Version 1)
Quarter: 2013Q1

REPORT INFORMATION
  Report Type: Spontaneous
  Country: US (occurrence: None)
  Receive Date: 20130304
  Receipt Date: 20130304
  Transmission Date: 20140127
  Serious: Yes (Hospitalization)
  Sender: FDA-Public Use
  Company Number: None

PATIENT
  Sex: Male
  Weight: 88.45 kg

DRUGS (1)
  1. CISPLATIN [Suspect]

REACTIONS (6)
  - Lobar pneumonia [None]
  - Hypertension [None]
  - Hypotension [None]
  - Septic shock [None]
  - Multi-organ failure [None]
  - Respiratory distress [None]
